FAERS Safety Report 9391261 (Version 2)
Quarter: 2013Q3

REPORT INFORMATION
  Report Type: Report from Study
  Country: US (occurrence: US)
  Receive Date: 20130709
  Receipt Date: 20130827
  Transmission Date: 20140515
  Serious: Yes (Hospitalization)
  Sender: FDA-Public Use
  Company Number: US-ACTELION-A-NJ2013-85431

PATIENT
  Age: 56 Year
  Sex: Female

DRUGS (16)
  1. TRACLEER [Suspect]
     Indication: PULMONARY ARTERIAL HYPERTENSION
     Dosage: 125 MG, BID
     Route: 048
     Dates: start: 20130319
  2. SILDENAFIL [Concomitant]
     Dosage: 20 MG, 5 TABLETS TID
  3. REMODULIN [Concomitant]
     Dosage: 1.25 NG/KG, PER MIN
  4. ADVAIR [Concomitant]
     Dosage: 250MCG/50MCG DOSE, 1 PUFFX2DAILY
  5. ALBUTEROL SULFATE [Concomitant]
     Dosage: 90 MCG, 2 PUFFS EVERY 4-6 HOURS
  6. ALLEGRA [Concomitant]
     Dosage: 180 MG, UNK
  7. DEXLANSOPRAZOLE [Concomitant]
     Dosage: 60 MG, UNK
  8. FLUTICASONE [Concomitant]
     Dosage: 88 MCG, BID
  9. FUROSEMIDE [Concomitant]
     Dosage: 20 MG, UNK
  10. HYDROCODONE BITARTRATE AND ACETAMINOPHEN [Concomitant]
     Dosage: 5MG-500MG, 1 TABLET EVERY 4-6 HOURS
  11. MUCINEX [Concomitant]
     Dosage: 30MG-600MG, 1 TAB EVERY 12 HOURS
  12. POTASSIUM CHLORIDE [Concomitant]
     Dosage: 10 MEQ, UNK
  13. PROMETHAZINE [Concomitant]
     Dosage: 12.5 MG, UNK
  14. SPIRONOLACTONE [Concomitant]
     Dosage: 25 MG, UNK
  15. VITAMIN D3 [Concomitant]
     Dosage: 1000 U, QD
  16. ZANTAC [Concomitant]
     Dosage: 150 MG, UNK

REACTIONS (7)
  - Fall [Recovered/Resolved]
  - Dizziness [Recovered/Resolved]
  - Syncope [Recovered/Resolved]
  - Pneumonia [Recovered/Resolved]
  - Nasal congestion [Recovered/Resolved]
  - Upper-airway cough syndrome [Recovered/Resolved]
  - Cough [Recovered/Resolved]
